FAERS Safety Report 4932331-0 (Version None)
Quarter: 2006Q1

REPORT INFORMATION
  Report Type: 
  Country: None (occurrence: None)
  Receive Date: 20060301
  Receipt Date: 20060214
  Transmission Date: 20060701
  Serious: Yes (Other)
  Sender: FDA-Public Use
  Company Number: 13540

PATIENT
  Age: 14 Year
  Sex: Male

DRUGS (6)
  1. METHOTREXATE [Suspect]
     Indication: RHEUMATOID FACTOR NEGATIVE
     Dosage: 7.5 MG WEEKLY, SC
     Route: 058
     Dates: start: 20031201, end: 20050314
  2. METHOTREXATE [Suspect]
     Indication: RHEUMATOID FACTOR NEGATIVE
     Dosage: 5 MG WEEKLY, SC
     Route: 058
     Dates: start: 20050314
  3. ENBREL [Suspect]
     Indication: JUVENILE ARTHRITIS
     Dosage: 25 MG/2 WK, SC
     Route: 058
     Dates: start: 20050111
  4. IBUPROFEN [Concomitant]
  5. NORDITROPINE [Concomitant]
  6. PARACETAMOL [Concomitant]

REACTIONS (2)
  - CATARACT [None]
  - VISUAL ACUITY REDUCED [None]
